FAERS Safety Report 8435774-6 (Version None)
Quarter: 2012Q2

REPORT INFORMATION
  Report Type: 
  Country: None (occurrence: None)
  Receive Date: 20120614
  Receipt Date: 20120606
  Transmission Date: 20120825
  Serious: Yes (Hospitalization, Other)
  Sender: FDA-Public Use
  Company Number: DE-ELI_LILLY_AND_COMPANY-DE201206001582

PATIENT
  Sex: Female

DRUGS (6)
  1. FORTEO [Suspect]
     Indication: OSTEOPOROSIS
     Dosage: UNK, QD
     Route: 058
     Dates: start: 20100921
  2. CALCILAC [Concomitant]
  3. METOPROLOL TARTRATE [Concomitant]
  4. EUTHYROX [Concomitant]
     Indication: THYROID DISORDER
  5. GLYBURIDE [Concomitant]
  6. ASPIRIN [Concomitant]

REACTIONS (4)
  - VOMITING [None]
  - MYOCARDIAL INFARCTION [None]
  - ASTHENIA [None]
  - ANAEMIA [None]
